FAERS Safety Report 6863553-X (Version None)
Quarter: 2010Q3

REPORT INFORMATION
  Report Type: 
  Country: None (occurrence: None)
  Receive Date: 20100721
  Receipt Date: 20080304
  Transmission Date: 20110219
  Serious: No
  Sender: FDA-Public Use
  Company Number: US-PFIZER INC-2008021997

PATIENT
  Sex: Male
  Weight: 93.2 kg

DRUGS (8)
  1. CHANTIX [Suspect]
     Indication: SMOKING CESSATION THERAPY
     Route: 048
     Dates: start: 20080101
  2. FENOFIBRATE [Concomitant]
     Indication: HYPERTENSION
     Route: 048
     Dates: start: 20020101
  3. MICARDIS [Concomitant]
     Indication: HYPERTENSION
     Route: 048
     Dates: start: 20020101
  4. ATENOLOL [Concomitant]
     Indication: ARTERIAL OCCLUSIVE DISEASE
     Route: 048
     Dates: start: 20020101
  5. GEMFIBROZIL [Concomitant]
     Indication: BLOOD CHOLESTEROL INCREASED
     Route: 048
     Dates: start: 20020101
  6. ALLEGRA [Concomitant]
     Route: 048
     Dates: start: 20020101
  7. METFORMIN [Concomitant]
     Route: 048
     Dates: start: 20020101
  8. METOPROLOL [Concomitant]
     Route: 048
     Dates: start: 20020101

REACTIONS (1)
  - ARTHRALGIA [None]
